FAERS Safety Report 4738604-9 (Version None)
Quarter: 2005Q3

REPORT INFORMATION
  Report Type: 
  Country: None (occurrence: None)
  Receive Date: 20050803
  Receipt Date: 20050708
  Transmission Date: 20060218
  Serious: Yes (Hospitalization)
  Sender: FDA-Public Use
  Company Number: US_0404102589

PATIENT
  Age: 50 Year
  Sex: Female
  Weight: 72 kg

DRUGS (4)
  1. HUMATROPE [Suspect]
     Indication: GROWTH HORMONE DEFICIENCY
     Dosage: 0.77 MG/1 DAY
     Dates: start: 19971028, end: 20031101
  2. PEMARIN (ESTROGENS CONJUGATED) [Concomitant]
  3. PROVERA [Concomitant]
  4. SYNTHROID [Concomitant]

REACTIONS (1)
  - HIP ARTHROPLASTY [None]
